FAERS Safety Report 7706609-1 (Version None)
Quarter: 2011Q3

REPORT INFORMATION
  Report Type: 
  Country: None (occurrence: None)
  Receive Date: 20110824
  Receipt Date: 20110812
  Transmission Date: 20111222
  Serious: Yes (Other)
  Sender: FDA-Public Use
  Company Number: US-ELI_LILLY_AND_COMPANY-US201108001249

PATIENT
  Age: 96 Year
  Sex: Female

DRUGS (1)
  1. FORTEO [Suspect]
     Indication: OSTEOPOROSIS
     Dosage: 20 UG, QD

REACTIONS (7)
  - NIGHT SWEATS [None]
  - MACULAR DEGENERATION [None]
  - DIZZINESS [None]
  - BURNING SENSATION [None]
  - HEADACHE [None]
  - SKIN REACTION [None]
  - MIGRAINE [None]
